FAERS Safety Report 19163000 (Version 1)
Quarter: 2021Q2

REPORT INFORMATION
  Report Type: Spontaneous
  Country: US (occurrence: US)
  Receive Date: 20210420
  Receipt Date: 20210420
  Transmission Date: 20210717
  Serious: Yes (Hospitalization)
  Sender: FDA-Public Use
  Company Number: None

PATIENT
  Sex: Male
  Weight: 92.1 kg

DRUGS (2)
  1. PEMBROLIZUMAB. [Suspect]
     Active Substance: PEMBROLIZUMAB
     Dates: end: 20210315
  2. PEMETREXED. [Suspect]
     Active Substance: PEMETREXED
     Dates: end: 20210315

REACTIONS (6)
  - Haemoptysis [None]
  - Hypotension [None]
  - Dizziness [None]
  - Fatigue [None]
  - Chest pain [None]
  - Escherichia test positive [None]

NARRATIVE: CASE EVENT DATE: 20210325
